FAERS Safety Report 9567714 (Version 1)
Quarter: 2013Q3

REPORT INFORMATION
  Report Type: Spontaneous
  Country: US (occurrence: US)
  Receive Date: 20130930
  Receipt Date: 20130930
  Transmission Date: 20140515
  Serious: No
  Sender: FDA-Public Use
  Company Number: US-AMGEN-USASP2013002430

PATIENT
  Age: 59 Year
  Sex: Male

DRUGS (3)
  1. ENBREL [Suspect]
     Indication: PSORIASIS
     Dosage: 50 MG, QWK
     Dates: start: 201202, end: 201205
  2. HUMIRA [Concomitant]
     Dosage: UNK
  3. SIMPONI [Concomitant]
     Dosage: UNK

REACTIONS (6)
  - Diarrhoea [Recovered/Resolved]
  - Erythema [Recovered/Resolved]
  - Local swelling [Recovered/Resolved]
  - Burning sensation [Recovered/Resolved]
  - Injection site erythema [Recovered/Resolved]
  - Injection site recall reaction [Recovered/Resolved]
